FAERS Safety Report 7357361-3 (Version None)
Quarter: 2011Q1

REPORT INFORMATION
  Report Type: 
  Country: None (occurrence: None)
  Receive Date: 20110311
  Receipt Date: 20110311
  Transmission Date: 20110831
  Serious: Yes (Hospitalization)
  Sender: FDA-Public Use
  Company Number: None

PATIENT
  Sex: Male
  Weight: 73.6 kg

DRUGS (8)
  1. HEPARIN [Suspect]
     Indication: THROMBOSIS PROPHYLAXIS
     Dosage: 5,000 UNITS Q8H SUBCUTANEOUS
     Route: 058
     Dates: start: 20110305
  2. OXYCODONE [Concomitant]
  3. MAGNESIUM SULFATE [Concomitant]
  4. ACETAMINOPHEN [Concomitant]
  5. ADVAIR DISKUS 100/50 [Concomitant]
  6. METOPROLOL TARTRATE [Concomitant]
  7. IBUPROFEN [Concomitant]
  8. DUONEB (ALBUTEROL / IPRATROPIUM ) [Concomitant]

REACTIONS (3)
  - HYPOGLYCAEMIA [None]
  - UNRESPONSIVE TO STIMULI [None]
  - BLOOD GLUCOSE FLUCTUATION [None]
